FAERS Safety Report 7731120-1 (Version None)
Quarter: 2011Q3

REPORT INFORMATION
  Report Type: 
  Country: None (occurrence: None)
  Receive Date: 20110906
  Receipt Date: 20110906
  Transmission Date: 20111222
  Serious: Yes (Life-Threatening, Other)
  Sender: FDA-Public Use
  Company Number: None

PATIENT
  Age: 39 Year
  Sex: Female
  Weight: 79.378 kg

DRUGS (4)
  1. HEPARIN LOCK-FLUSH [Suspect]
     Indication: BABESIOSIS
     Dosage: 10 ML
     Route: 042
     Dates: start: 20070901, end: 20080325
  2. HEPARIN LOCK-FLUSH [Suspect]
     Indication: BARTONELLOSIS
     Dosage: 10 ML
     Route: 042
     Dates: start: 20070901, end: 20080325
  3. HEPARIN LOCK-FLUSH [Suspect]
     Indication: NEUROBORRELIOSIS
     Dosage: 10 ML
     Route: 042
     Dates: start: 20070901, end: 20080325
  4. HEPARIN LOCK-FLUSH [Concomitant]

REACTIONS (14)
  - LEFT ATRIAL DILATATION [None]
  - PRODUCT QUALITY ISSUE [None]
  - DEVICE OCCLUSION [None]
  - TOXICITY TO VARIOUS AGENTS [None]
  - SWOLLEN TONGUE [None]
  - FEELING ABNORMAL [None]
  - ABDOMINAL PAIN UPPER [None]
  - DIARRHOEA [None]
  - VOMITING [None]
  - DYSPNOEA [None]
  - PHARYNGEAL OEDEMA [None]
  - LOSS OF CONSCIOUSNESS [None]
  - CHEST PAIN [None]
  - PRODUCT CONTAMINATION [None]
